FAERS Safety Report 25470165 (Version 2)
Quarter: 2025Q4

REPORT INFORMATION
  Report Type: Spontaneous
  Country: EU (occurrence: EU)
  Receive Date: 20250623
  Receipt Date: 20251214
  Transmission Date: 20260118
  Serious: Yes (Hospitalization)
  Sender: JOHNSON AND JOHNSON
  Company Number: None

PATIENT
  Age: 15 Year
  Sex: Male
  Weight: 82 kg

DRUGS (6)
  1. INFLIXIMAB [Suspect]
     Active Substance: INFLIXIMAB
     Indication: Colitis ulcerative
     Route: 042
     Dates: start: 20240626
  2. METHOTREXATE [Suspect]
     Active Substance: METHOTREXATE
     Indication: Colitis ulcerative
     Route: 048
     Dates: start: 20240626
  3. FOLIC ACID [Suspect]
     Active Substance: FOLIC ACID
     Indication: Colitis ulcerative
     Route: 048
     Dates: start: 20240626
  4. ASCORBIC ACID\FERROUS SULFATE [Suspect]
     Active Substance: ASCORBIC ACID\FERROUS SULFATE
     Indication: Colitis ulcerative
     Route: 048
     Dates: start: 20240626
  5. ADALIMUMAB [Suspect]
     Active Substance: ADALIMUMAB
     Indication: Colitis ulcerative
     Route: 058
  6. HYDROXYZINE HYDROCHLORIDE [Suspect]
     Active Substance: HYDROXYZINE HYDROCHLORIDE
     Indication: Anxiety
     Route: 048
     Dates: end: 20240809

REACTIONS (4)
  - Anxiety [Recovering/Resolving]
  - Thymus disorder [Recovering/Resolving]
  - Psychotic disorder [Recovering/Resolving]
  - Suicide attempt [Recovered/Resolved]

NARRATIVE: CASE EVENT DATE: 20240701
